FAERS Safety Report 6683133-9 (Version None)
Quarter: 2010Q2

REPORT INFORMATION
  Report Type: 
  Country: None (occurrence: None)
  Receive Date: 20100415
  Receipt Date: 20100413
  Transmission Date: 20101027
  Serious: Yes (Life-Threatening)
  Sender: FDA-Public Use
  Company Number: CHPA2010EG06668

PATIENT
  Sex: Male

DRUGS (1)
  1. OTRIVIN [Suspect]
     Indication: NASAL DECONGESTION THERAPY
     Dosage: UNK, UNK
     Route: 045

REACTIONS (3)
  - COMA [None]
  - DRUG INEFFECTIVE [None]
  - OVERDOSE [None]
